FAERS Safety Report 24387917 (Version 1)
Quarter: 2024Q4

REPORT INFORMATION
  Report Type: Spontaneous
  Country: US (occurrence: US)
  Receive Date: 20241002
  Receipt Date: 20241002
  Transmission Date: 20250115
  Serious: No
  Sender: ROCHE
  Company Number: US-ROCHE-10000095325

PATIENT
  Age: 53 Year
  Sex: Male
  Weight: 82.1 kg

DRUGS (2)
  1. XOLAIR [Suspect]
     Active Substance: OMALIZUMAB
     Indication: Asthma
     Route: 048
     Dates: start: 20240402
  2. XOLAIR [Suspect]
     Active Substance: OMALIZUMAB
     Route: 048
     Dates: start: 20240402

REACTIONS (1)
  - Confusional state [Unknown]
